FAERS Safety Report 12540249 (Version 1)
Quarter: 2016Q3

REPORT INFORMATION
  Report Type: Spontaneous
  Country: FR (occurrence: FR)
  Receive Date: 20160708
  Receipt Date: 20160708
  Transmission Date: 20161109
  Serious: Yes (Other)
  Sender: FDA-Public Use
  Company Number: FR-PFIZER INC-2016332696

PATIENT
  Age: 87 Year
  Sex: Female

DRUGS (8)
  1. PARACETAMOL [Concomitant]
     Active Substance: ACETAMINOPHEN
     Dosage: UNK
     Route: 048
  2. SERETIDE [Concomitant]
     Active Substance: FLUTICASONE PROPIONATE\SALMETEROL XINAFOATE
     Dosage: UNK
     Route: 048
  3. CLOMIPRAMINE HCL [Suspect]
     Active Substance: CLOMIPRAMINE
     Indication: DEPRESSION
     Dosage: 75 MG, DAILY
     Route: 048
     Dates: end: 20160530
  4. LANSOPRAZOLE. [Concomitant]
     Active Substance: LANSOPRAZOLE
     Dosage: UNK
  5. TEMESTA [Concomitant]
     Active Substance: LORAZEPAM
     Dosage: UNK
  6. TERCIAN [Concomitant]
     Active Substance: CYAMEMAZINE
     Dosage: UNK
  7. DISCOTRINE [Suspect]
     Active Substance: NITROGLYCERIN
     Dosage: 1 DF, DAILY
     Route: 062
     Dates: end: 20160530
  8. BISOCE [Suspect]
     Active Substance: BISOPROLOL
     Dosage: 1.25 MG, DAILY
     Route: 048
     Dates: end: 20160530

REACTIONS (2)
  - Orthostatic hypotension [Recovering/Resolving]
  - Fall [Recovering/Resolving]

NARRATIVE: CASE EVENT DATE: 201605
